FAERS Safety Report 22017355 (Version 1)
Quarter: 2023Q1

REPORT INFORMATION
  Report Type: Other
  Country: DE (occurrence: DE)
  Receive Date: 20230221
  Receipt Date: 20230221
  Transmission Date: 20230418
  Serious: Yes (Hospitalization, Other)
  Sender: FDA-Public Use
  Company Number: DE-BAYER-2023A000807

PATIENT
  Age: 44 Year
  Sex: Female

DRUGS (8)
  1. GADOLINIUM [Suspect]
     Active Substance: GADOLINIUM
     Indication: Diagnostic procedure
     Dosage: UNK UNK, SINGLE
     Route: 065
  2. GADOLINIUM [Suspect]
     Active Substance: GADOLINIUM
     Indication: Product used for unknown indication
  3. DOTAREM [Suspect]
     Active Substance: GADOTERATE MEGLUMINE
     Indication: Magnetic resonance imaging
     Dosage: 12 ML, SINGLE
     Route: 065
  4. DOTAREM [Suspect]
     Active Substance: GADOTERATE MEGLUMINE
     Indication: Renal neoplasm
     Dosage: 12 ML, SINGLE
     Route: 065
  5. DOTAREM [Suspect]
     Active Substance: GADOTERATE MEGLUMINE
     Dosage: 12 ML, SINGLE
     Route: 065
     Dates: start: 20200825, end: 20200825
  6. DOTAREM [Suspect]
     Active Substance: GADOTERATE MEGLUMINE
     Dosage: 12 ML, SINGLE
     Route: 065
     Dates: start: 20220620, end: 20220620
  7. DOTAREM [Suspect]
     Active Substance: GADOTERATE MEGLUMINE
     Dosage: 12 ML, SINGLE
     Route: 065
  8. DOTAREM [Suspect]
     Active Substance: GADOTERATE MEGLUMINE
     Dosage: 12 ML, SINGLE
     Route: 065

REACTIONS (12)
  - Cognitive disorder [Not Recovered/Not Resolved]
  - Hypoaesthesia [Not Recovered/Not Resolved]
  - Angiosclerosis [Not Recovered/Not Resolved]
  - Anaemia [Not Recovered/Not Resolved]
  - Muscle twitching [Not Recovered/Not Resolved]
  - Dyspepsia [Not Recovered/Not Resolved]
  - Skin disorder [Not Recovered/Not Resolved]
  - Arrhythmia [Not Recovered/Not Resolved]
  - Myalgia [Not Recovered/Not Resolved]
  - Fatigue [Not Recovered/Not Resolved]
  - Paraesthesia [Not Recovered/Not Resolved]
  - Arthralgia [Not Recovered/Not Resolved]
